FAERS Safety Report 8839349 (Version 1)
Quarter: 2012Q4

REPORT INFORMATION
  Report Type: 
  Country: US (occurrence: US)
  Receive Date: 20121015
  Receipt Date: 20121015
  Transmission Date: 20130627
  Serious: Yes (Other)
  Sender: FDA-Public Use
  Company Number: US-SANOFI-AVENTIS-2012SA074756

PATIENT
  Sex: Female

DRUGS (4)
  1. LANTUS SOLOSTAR [Suspect]
     Indication: TYPE II DIABETES MELLITUS
     Dosage: 40 units in the morning and 30 units in the evening.
     Route: 058
  2. LANTUS SOLOSTAR [Suspect]
     Indication: TYPE II DIABETES MELLITUS
     Dosage: 40 units in the morning and 30 units in the evening.
     Route: 058
  3. SOLOSTAR [Suspect]
     Indication: TYPE II DIABETES MELLITUS
  4. SOLOSTAR [Suspect]
     Indication: TYPE II DIABETES MELLITUS

REACTIONS (2)
  - Cerebrovascular disorder [Unknown]
  - Headache [Unknown]
